FAERS Safety Report 8114845-8 (Version None)
Quarter: 2012Q1

REPORT INFORMATION
  Report Type: 
  Country: None (occurrence: None)
  Receive Date: 20120131
  Receipt Date: 20110620
  Transmission Date: 20120608
  Serious: Yes (Death)
  Sender: FDA-Public Use
  Company Number: 2011003174

PATIENT
  Age: 21 Year
  Sex: Male

DRUGS (2)
  1. ERYTHROMYCIN [Suspect]
     Indication: ACNE
     Dosage: 500 MG (250 MG, 2 IN 1 D)
     Route: 048
     Dates: start: 20110324
  2. DULOXETIME HYDROCHLORIDE [Suspect]
     Indication: DEPRESSION
     Dosage: ,(60 MG)
     Route: 048
     Dates: start: 20110402

REACTIONS (1)
  - ARRHYTHMIA [None]
